FAERS Safety Report 20657433 (Version 1)
Quarter: 2022Q1

REPORT INFORMATION
  Report Type: Spontaneous
  Country: JP (occurrence: JP)
  Receive Date: 20220331
  Receipt Date: 20220331
  Transmission Date: 20220424
  Serious: Yes (Hospitalization)
  Sender: FDA-Public Use
  Company Number: JP-TEVA-2021-JP-1994906

PATIENT
  Age: 73 Year
  Sex: Female
  Weight: 38 kg

DRUGS (7)
  1. TRISENOX [Suspect]
     Active Substance: ARSENIC TRIOXIDE
     Indication: Acute promyelocytic leukaemia
     Dosage: .15 MG/KG DAILY;
     Route: 042
     Dates: start: 20211108, end: 20211203
  2. CARVEDILOL [Concomitant]
     Active Substance: CARVEDILOL
     Indication: Essential hypertension
     Dosage: 5 MILLIGRAM DAILY;
     Route: 065
     Dates: end: 20211205
  3. CILNIDIPINE [Concomitant]
     Active Substance: CILNIDIPINE
     Indication: Essential hypertension
     Dosage: 10 MILLIGRAM DAILY;
     Route: 065
     Dates: end: 20211202
  4. PRANLUKAST [Concomitant]
     Active Substance: PRANLUKAST
     Indication: Sinobronchitis
     Dosage: 450 MILLIGRAM DAILY;
     Route: 065
  5. RABEPRAZOLE SODIUM [Concomitant]
     Active Substance: RABEPRAZOLE SODIUM
     Indication: Gastrooesophageal reflux disease
     Dosage: 10 MILLIGRAM DAILY;
     Route: 065
  6. POTASSIUM ASPARTATE [Concomitant]
     Active Substance: POTASSIUM ASPARTATE
     Indication: Hypokalaemia
     Dosage: 6300 MILLIGRAM DAILY;
     Route: 065
  7. MEMANTINE HYDROCHLORIDE [Concomitant]
     Active Substance: MEMANTINE HYDROCHLORIDE
     Indication: Dementia
     Dosage: 20 MILLIGRAM DAILY;

REACTIONS (1)
  - Stress cardiomyopathy [Recovered/Resolved]

NARRATIVE: CASE EVENT DATE: 20211205
